FAERS Safety Report 4265557-2 (Version None)
Quarter: 2004Q1

REPORT INFORMATION
  Report Type: 
  Country: None (occurrence: None)
  Receive Date: 20040106
  Receipt Date: 20031229
  Transmission Date: 20041129
  Serious: Yes (Hospitalization)
  Sender: FDA-Public Use
  Company Number: K200301943

PATIENT
  Age: 64 Year
  Sex: Male

DRUGS (4)
  1. ALTACE [Suspect]
     Dosage: ORAL
     Route: 048
     Dates: end: 20031120
  2. LASIX [Suspect]
     Dosage: 40 MG, QD, ORAL
     Route: 048
     Dates: start: 20031008, end: 20031122
  3. PRAVASTATIN SODIUM [Concomitant]
  4. MODOPAR           (BENSERAZIDE HYDROCHLORIDE, LEVODOPA) [Concomitant]

REACTIONS (1)
  - PERICARDITIS CONSTRICTIVE [None]
